FAERS Safety Report 13855779 (Version 4)
Quarter: 2018Q2

REPORT INFORMATION
  Report Type: Spontaneous
  Country: US (occurrence: US)
  Receive Date: 20170810
  Receipt Date: 20180508
  Transmission Date: 20180711
  Serious: No
  Sender: FDA-Public Use
  Company Number: US-VIFOR (INTERNATIONAL) INC.-VIT-2016-07960

PATIENT
  Age: 76 Year
  Sex: Male

DRUGS (17)
  1. VELTASSA [Suspect]
     Active Substance: PATIROMER
     Indication: HYPERKALAEMIA
     Route: 048
     Dates: start: 20161021
  2. TRADJENTA [Concomitant]
     Active Substance: LINAGLIPTIN
     Dates: start: 20161020
  3. CYANOCOBALAMIN. [Concomitant]
     Active Substance: CYANOCOBALAMIN
     Dates: start: 20161020
  4. ATORVASTATIN [Concomitant]
     Active Substance: ATORVASTATIN
     Dates: start: 20161020
  5. OMEPRAZOLE. [Concomitant]
     Active Substance: OMEPRAZOLE
     Dates: start: 20161020
  6. COLECALCIFEROL [Concomitant]
     Active Substance: CHOLECALCIFEROL
     Dates: start: 20161020
  7. METOPROLOL. [Concomitant]
     Active Substance: METOPROLOL
     Dates: start: 20161020
  8. LEVOTHYROXINE SODIUM. [Concomitant]
     Active Substance: LEVOTHYROXINE SODIUM
     Dates: start: 20161020
  9. AMLODIPINE [Concomitant]
     Active Substance: AMLODIPINE BESYLATE
     Dates: start: 20161020
  10. CLOPIDOGREL [Concomitant]
     Active Substance: CLOPIDOGREL BISULFATE
     Dates: start: 20161020
  11. NITROSTAT [Concomitant]
     Active Substance: NITROGLYCERIN
     Dates: start: 20161020
  12. GLIMEPIRIDE. [Concomitant]
     Active Substance: GLIMEPIRIDE
     Dates: start: 20161020
  13. ULORIC [Concomitant]
     Active Substance: FEBUXOSTAT
     Dates: start: 20161020
  14. LISINOPRIL. [Concomitant]
     Active Substance: LISINOPRIL
     Dates: start: 20161020
  15. ACETYLSALICYLIC ACID [Concomitant]
     Active Substance: ASPIRIN
     Dates: start: 20161020
  16. VELTASSA [Suspect]
     Active Substance: PATIROMER
     Route: 048
     Dates: start: 201609
  17. GABAPENTIN. [Concomitant]
     Active Substance: GABAPENTIN
     Dates: start: 20161020

REACTIONS (3)
  - Blood glucose increased [Recovering/Resolving]
  - Constipation [Recovering/Resolving]
  - Blood triglycerides increased [Unknown]

NARRATIVE: CASE EVENT DATE: 201610
